FAERS Safety Report 17474958 (Version 2)
Quarter: 2020Q2

REPORT INFORMATION
  Report Type: Spontaneous
  Country: US (occurrence: US)
  Receive Date: 20200228
  Receipt Date: 20200528
  Transmission Date: 20200713
  Serious: Yes (Other)
  Sender: FDA-Public Use
  Company Number: US-009507513-2002USA010000

PATIENT
  Age: 47 Year
  Sex: Male

DRUGS (2)
  1. CUBICIN [Suspect]
     Active Substance: DAPTOMYCIN
     Indication: ENDOCARDITIS ENTEROCOCCAL
     Dosage: 9 MILLIGRAM/KILOGRAM; INITIAL DOSE
  2. CUBICIN [Suspect]
     Active Substance: DAPTOMYCIN
     Indication: EMPYEMA
     Dosage: 9 MILLIGRAM/KILOGRAM, 10 WEEKS (DEFINITIVE TREATMENT)

REACTIONS (2)
  - Off label use [Unknown]
  - Pathogen resistance [Unknown]
